APPROVED DRUG PRODUCT: CETIRIZINE HYDROCHLORIDE ALLERGY
Active Ingredient: CETIRIZINE HYDROCHLORIDE
Strength: 10MG
Dosage Form/Route: TABLET;ORAL
Application: A078343 | Product #003
Applicant: DR REDDYS LABORATORIES LTD
Approved: Jan 15, 2008 | RLD: No | RS: No | Type: OTC